FAERS Safety Report 10339451 (Version 3)
Quarter: 2015Q1

REPORT INFORMATION
  Report Type: Report from Study
  Country: US (occurrence: US)
  Receive Date: 20140724
  Receipt Date: 20150309
  Transmission Date: 20150720
  Serious: Yes (Hospitalization)
  Sender: FDA-Public Use
  Company Number: US-OTSUKA-US-2014-11813

PATIENT
  Age: 32 Year
  Sex: Female

DRUGS (14)
  1. ETONOGESTREL [Concomitant]
     Active Substance: ETONOGESTREL
     Indication: CONTRACEPTION
     Dosage: 0.120 MG MILLIGRAM(S), QD
     Route: 067
     Dates: start: 20131111, end: 20140202
  2. BACTRIM [Concomitant]
     Active Substance: SULFAMETHOXAZOLE\TRIMETHOPRIM
     Indication: INGROWN HAIR
     Dosage: 480 MG MILLIGRAM(S), QD
     Route: 048
     Dates: start: 20140701, end: 20140711
  3. AMOXICILLIN. [Concomitant]
     Active Substance: AMOXICILLIN
     Indication: ACNE
     Dosage: 875 MG MILLIGRAM(S), BID
     Route: 048
     Dates: start: 201210, end: 20140619
  4. LOMOTIL [Concomitant]
     Active Substance: ATROPINE SULFATE\DIPHENOXYLATE HYDROCHLORIDE
     Indication: DIARRHOEA
     Dosage: 2 MG MILLIGRAM(S), PRN
     Route: 048
     Dates: start: 20130901
  5. DEXLANSOPRAZOLE [Concomitant]
     Active Substance: DEXLANSOPRAZOLE
     Indication: GASTROOESOPHAGEAL REFLUX DISEASE
     Dosage: 60 MG MILLIGRAM(S), QD
     Route: 048
     Dates: start: 2014
  6. OPC-41061 [Suspect]
     Active Substance: TOLVAPTAN
     Indication: CONGENITAL CYSTIC KIDNEY DISEASE
     Dosage: 90 MG MILLIGRAM(S), QD
     Route: 048
     Dates: start: 20130627, end: 20140714
  7. BYSTOLIC [Concomitant]
     Active Substance: NEBIVOLOL HYDROCHLORIDE
     Indication: HYPERTENSION
     Dosage: 5 MG MILLIGRAM(S), QD
     Route: 048
     Dates: start: 20140627, end: 20140715
  8. BYSTOLIC [Concomitant]
     Active Substance: NEBIVOLOL HYDROCHLORIDE
     Dosage: 10 MG MILLIGRAM(S), QD
     Route: 048
     Dates: start: 20100803, end: 20140626
  9. ESTRADIOL. [Concomitant]
     Active Substance: ESTRADIOL
     Indication: CONTRACEPTION
     Dosage: 0.015 MG MILLIGRAM(S), QD
     Route: 067
     Dates: start: 20131111, end: 20140202
  10. LISINOPRIL. [Concomitant]
     Active Substance: LISINOPRIL
     Indication: HYPERTENSION
     Dosage: 40 MG MILLIGRAM(S), QD
     Route: 048
     Dates: start: 200803, end: 20140715
  11. LUNESTA [Concomitant]
     Active Substance: ESZOPICLONE
     Indication: INSOMNIA
     Dosage: 3 MG MILLIGRAM(S), QD
     Route: 048
     Dates: start: 200611
  12. TRETINOIN. [Concomitant]
     Active Substance: TRETINOIN
     Indication: ACNE
     Dosage: 0.025 % PERCENT, QD
     Route: 061
     Dates: start: 201210
  13. OPC-41061 [Suspect]
     Active Substance: TOLVAPTAN
     Dosage: 90 MG MILLIGRAM(S), QD
     Route: 048
     Dates: start: 20140717
  14. SPIRONOLACTONE. [Concomitant]
     Active Substance: SPIRONOLACTONE
     Indication: HYPERTENSION
     Dosage: 50 MG MILLIGRAM(S), QD
     Route: 048
     Dates: start: 20140701, end: 20140715

REACTIONS (2)
  - Acute kidney injury [Recovered/Resolved]
  - Dehydration [None]

NARRATIVE: CASE EVENT DATE: 20140712
